FAERS Safety Report 7291343-5 (Version None)
Quarter: 2011Q1

REPORT INFORMATION
  Report Type: 
  Country: None (occurrence: None)
  Receive Date: 20110214
  Receipt Date: 20110208
  Transmission Date: 20110831
  Serious: Yes (Congenital Anomaly)
  Sender: FDA-Public Use
  Company Number: A0906686A

PATIENT

DRUGS (4)
  1. ZERIT [Suspect]
     Indication: ANTIVIRAL TREATMENT
     Route: 064
  2. RETROVIR [Suspect]
     Indication: ANTIVIRAL TREATMENT
     Route: 064
     Dates: start: 20090703, end: 20090703
  3. REYATAZ [Suspect]
     Indication: ANTIVIRAL TREATMENT
     Route: 064
  4. EPIVIR [Suspect]
     Indication: ANTIVIRAL TREATMENT
     Route: 064

REACTIONS (4)
  - RETINOBLASTOMA [None]
  - DRUG EXPOSURE DURING PREGNANCY [None]
  - NEOPLASM [None]
  - MATERNAL DRUGS AFFECTING FOETUS [None]
